FAERS Safety Report 23469529 (Version 1)
Quarter: 2024Q1

REPORT INFORMATION
  Report Type: Spontaneous
  Country: CA (occurrence: CA)
  Receive Date: 20240202
  Receipt Date: 20240202
  Transmission Date: 20240410
  Serious: Yes (Other)
  Sender: FDA-Public Use
  Company Number: CA-002147023-NVSC2019CA068424

PATIENT
  Sex: Male
  Weight: 15 kg

DRUGS (39)
  1. HYDROCORTISONE [Suspect]
     Active Substance: HYDROCORTISONE
     Indication: Product used for unknown indication
     Dosage: UNK
     Route: 065
     Dates: end: 20190227
  2. ILARIS [Suspect]
     Active Substance: CANAKINUMAB
     Dosage: 100 MG EVERY 03 WEEK
     Route: 058
     Dates: start: 20191211
  3. ILARIS [Suspect]
     Active Substance: CANAKINUMAB
     Dosage: 100 MG, SINGLE-USE VIAL
     Route: 058
  4. ILARIS [Suspect]
     Active Substance: CANAKINUMAB
     Dosage: 100 MG, SINGLE-USE VIAL
     Route: 058
  5. ILARIS [Suspect]
     Active Substance: CANAKINUMAB
     Indication: Autoinflammatory disease
     Dosage: 120 MG, BIW, SINGLE-USE VIAL
     Route: 058
     Dates: start: 20190301
  6. ILARIS [Suspect]
     Active Substance: CANAKINUMAB
     Dosage: 120 MG EVERY 03 WEEK
     Route: 058
     Dates: start: 20210531
  7. ILARIS [Suspect]
     Active Substance: CANAKINUMAB
     Dosage: 120 MG, SINGLE-USE VIAL
     Route: 058
  8. ILARIS [Suspect]
     Active Substance: CANAKINUMAB
     Dosage: 120 MG, SINGLE-USE VIAL
     Route: 058
  9. ILARIS [Suspect]
     Active Substance: CANAKINUMAB
     Dosage: 120 MG, SINGLE-USE VIAL
     Route: 058
  10. ILARIS [Suspect]
     Active Substance: CANAKINUMAB
     Dosage: 150 MG, BIW, SINGLE-USE VIAL
     Route: 058
  11. ILARIS [Suspect]
     Active Substance: CANAKINUMAB
     Dosage: 150 MG, BIW, SINGLE-USE VIAL
     Route: 058
  12. ILARIS [Suspect]
     Active Substance: CANAKINUMAB
     Dosage: 150 MG, SINGLE-USE VIAL
     Route: 058
  13. ILARIS [Suspect]
     Active Substance: CANAKINUMAB
     Dosage: 150 MG, SINGLE-USE VIAL
     Route: 058
  14. ILARIS [Suspect]
     Active Substance: CANAKINUMAB
     Dosage: 150 MG, SINGLE-USE VIAL
     Route: 058
  15. ILARIS [Suspect]
     Active Substance: CANAKINUMAB
     Dosage: 150 MG, SINGLE-USE VIAL
     Route: 058
  16. ILARIS [Suspect]
     Active Substance: CANAKINUMAB
     Dosage: 150 MG, EVERY 10 DAYS
     Route: 058
  17. ADALIMUMAB [Concomitant]
     Active Substance: ADALIMUMAB\ISOPROPYL ALCOHOL
     Indication: Product used for unknown indication
     Dosage: UNK
     Route: 058
     Dates: start: 20200718, end: 202207
  18. ADALIMUMAB [Concomitant]
     Active Substance: ADALIMUMAB\ISOPROPYL ALCOHOL
     Dosage: UNK
     Route: 058
     Dates: end: 202207
  19. AMLODIPINE [Concomitant]
     Active Substance: AMLODIPINE BESYLATE
     Indication: Product used for unknown indication
     Dosage: UNK
     Route: 065
     Dates: end: 201910
  20. ANAKINRA [Concomitant]
     Active Substance: ANAKINRA
     Indication: Product used for unknown indication
     Dosage: UNK
     Route: 065
     Dates: start: 201707, end: 20190301
  21. DOMPERIDONE [Concomitant]
     Active Substance: DOMPERIDONE
     Indication: Product used for unknown indication
     Dosage: UNK
     Route: 065
     Dates: start: 201905, end: 201907
  22. ENALAPRIL [Concomitant]
     Active Substance: ENALAPRIL
     Indication: Product used for unknown indication
     Dosage: UNK
     Route: 065
     Dates: end: 20190517
  23. INFLIXIMAB [Concomitant]
     Active Substance: INFLIXIMAB
     Indication: Product used for unknown indication
     Dosage: UNK
     Route: 065
     Dates: start: 20220208
  24. INFLIXIMAB [Concomitant]
     Active Substance: INFLIXIMAB
     Dosage: UNK
     Route: 065
  25. METHYLPREDNISOLONE SODIUM SUCCINATE [Concomitant]
     Active Substance: METHYLPREDNISOLONE SODIUM SUCCINATE
     Dosage: UNK, QD
     Route: 042
     Dates: start: 20190411, end: 20190914
  26. METHYLPREDNISOLONE SODIUM SUCCINATE [Concomitant]
     Active Substance: METHYLPREDNISOLONE SODIUM SUCCINATE
     Dosage: UNK, QD
     Route: 042
  27. METHYLPREDNISOLONE SODIUM SUCCINATE [Concomitant]
     Active Substance: METHYLPREDNISOLONE SODIUM SUCCINATE
     Indication: Haemophagocytic lymphohistiocytosis
     Dosage: UNK
     Route: 065
     Dates: start: 201706, end: 20190203
  28. METHYLPREDNISOLONE SODIUM SUCCINATE [Concomitant]
     Active Substance: METHYLPREDNISOLONE SODIUM SUCCINATE
     Dosage: UNK
     Route: 065
  29. METHYLPREDNISOLONE SODIUM SUCCINATE [Concomitant]
     Active Substance: METHYLPREDNISOLONE SODIUM SUCCINATE
     Dosage: UNK
     Route: 065
  30. PERIACTIN [Concomitant]
     Active Substance: CYPROHEPTADINE HYDROCHLORIDE
     Indication: Product used for unknown indication
     Dosage: UNK
     Route: 065
     Dates: end: 201909
  31. PREDNISONE [Concomitant]
     Active Substance: PREDNISONE
     Indication: Product used for unknown indication
     Dosage: 15 MG, QD (IN MORNING FOR 5 DAYS)
     Route: 048
  32. PREDNISONE [Concomitant]
     Active Substance: PREDNISONE
     Dosage: 7.5 MG, QD (IN MORNING FOR 5 DAYS)
     Route: 048
  33. PREVACID [Concomitant]
     Active Substance: LANSOPRAZOLE
     Indication: Product used for unknown indication
     Dosage: 15 MG, QD OSTOMY DAILY ^FAST TAB^ TO BE DILUTED IN 5ML WATER AND RINSED WITH 10ML OF
     Route: 048
  34. SEPTRA [Concomitant]
     Active Substance: SULFAMETHOXAZOLE\TRIMETHOPRIM
     Indication: Product used for unknown indication
     Dosage: UNK
     Route: 065
     Dates: end: 201906
  35. SIROLIMUS [Concomitant]
     Active Substance: SIROLIMUS
     Indication: Product used for unknown indication
     Dosage: UNK ,(853.0)
     Route: 065
     Dates: start: 2017, end: 20190504
  36. SYNAGIS [Concomitant]
     Active Substance: PALIVIZUMAB
     Indication: Product used for unknown indication
     Dosage: UNK
     Route: 065
     Dates: start: 201902, end: 201904
  37. SYNAGIS [Concomitant]
     Active Substance: PALIVIZUMAB
     Dosage: UNK
     Route: 065
  38. SYNAGIS [Concomitant]
     Active Substance: PALIVIZUMAB
     Dosage: UNK(POWDER FOR SOLUTION INTRAMUSCULAR)
     Route: 065
  39. URSO [Concomitant]
     Active Substance: URSODIOL
     Indication: Product used for unknown indication
     Dosage: UNK
     Route: 065
     Dates: end: 201907

REACTIONS (11)
  - Haematochezia [Recovered/Resolved]
  - Fluid intake reduced [Unknown]
  - Off label use [Recovered/Resolved]
  - Pyrexia [Unknown]
  - Inflammatory marker increased [Unknown]
  - Chronic gastritis [Unknown]
  - Proctitis [Unknown]
  - Viral infection [Recovered/Resolved]
  - Urinary tract infection [Unknown]
  - Gait disturbance [Unknown]
  - Product use in unapproved indication [Unknown]
